FAERS Safety Report 8720125 (Version 4)
Quarter: 2013Q3

REPORT INFORMATION
  Report Type: Spontaneous
  Country: US (occurrence: US)
  Receive Date: 20120813
  Receipt Date: 20130828
  Transmission Date: 20140515
  Serious: Yes (Death)
  Sender: FDA-Public Use
  Company Number: 2012SP002232

PATIENT
  Age: 59 Year
  Sex: Male

DRUGS (19)
  1. LATUDA [Suspect]
     Indication: SCHIZOPHRENIA
     Route: 048
     Dates: start: 20120723, end: 20120727
  2. LATUDA [Suspect]
     Indication: PSYCHIATRIC DECOMPENSATION
     Route: 048
     Dates: start: 20120723, end: 20120727
  3. LATUDA [Suspect]
     Indication: SCHIZOPHRENIA
     Route: 048
     Dates: start: 20120717, end: 20120722
  4. LATUDA [Suspect]
     Indication: PSYCHIATRIC DECOMPENSATION
     Route: 048
     Dates: start: 20120717, end: 20120722
  5. CLOZARIL [Concomitant]
     Indication: SCHIZOPHRENIA
     Dates: start: 201206, end: 20120717
  6. CLOZARIL [Concomitant]
     Indication: SCHIZOPHRENIA
     Dates: start: 2011, end: 201206
  7. CLOZARIL [Concomitant]
     Indication: SCHIZOPHRENIA
     Dates: end: 2011
  8. ROBINUL [Concomitant]
     Indication: PRODUCT USED FOR UNKNOWN INDICATION
     Dates: start: 20120124, end: 20120718
  9. DOXYCYCLINE [Concomitant]
     Indication: DERMAL CYST
     Route: 048
     Dates: start: 20120709, end: 20120716
  10. ALL OTHER THERAPEUTIC PRODUCTS [Concomitant]
     Indication: DERMAL CYST
     Dates: start: 201207, end: 201207
  11. LEXAPRO [Concomitant]
     Indication: PRODUCT USED FOR UNKNOWN INDICATION
  12. CLONAZEPAM [Concomitant]
     Indication: PRODUCT USED FOR UNKNOWN INDICATION
  13. BUSPAR [Concomitant]
     Indication: PRODUCT USED FOR UNKNOWN INDICATION
  14. TRIAMCINOLONE [Concomitant]
     Indication: PRODUCT USED FOR UNKNOWN INDICATION
  15. COMBIGAN [Concomitant]
     Indication: PRODUCT USED FOR UNKNOWN INDICATION
  16. NEXIUM                             /01479302/ [Concomitant]
     Indication: PRODUCT USED FOR UNKNOWN INDICATION
  17. LIPITOR [Concomitant]
     Indication: PRODUCT USED FOR UNKNOWN INDICATION
  18. MIRALAX                            /00754501/ [Concomitant]
     Indication: PRODUCT USED FOR UNKNOWN INDICATION
  19. COGENTIN [Concomitant]
     Indication: PRODUCT USED FOR UNKNOWN INDICATION

REACTIONS (1)
  - Sudden death [Fatal]
